FAERS Safety Report 7103410-7 (Version None)
Quarter: 2010Q4

REPORT INFORMATION
  Report Type: 
  Country: None (occurrence: None)
  Receive Date: 20101115
  Receipt Date: 20101104
  Transmission Date: 20110411
  Serious: Yes (Other)
  Sender: FDA-Public Use
  Company Number: SA-BAYER-201045580GPV

PATIENT
  Age: 67 Year
  Sex: Female

DRUGS (4)
  1. CIPROFLOXACIN [Suspect]
     Indication: PNEUMONIA
     Dosage: TOTAL DAILY DOSE: 400 MG
     Route: 042
     Dates: start: 19980101, end: 19980101
  2. CEFUROXIME [Concomitant]
     Indication: LOBAR PNEUMONIA
     Dosage: TOTAL DAILY DOSE: 1500 MG
     Route: 042
     Dates: start: 19980301
  3. CEFUROXIME [Concomitant]
     Dosage: TOTAL DAILY DOSE: 750 MG
     Route: 042
     Dates: start: 19980301
  4. FUROSEMIDE [Concomitant]
     Route: 042

REACTIONS (11)
  - ASTERIXIS [None]
  - CONFUSIONAL STATE [None]
  - DISORIENTATION [None]
  - ENCEPHALOPATHY [None]
  - HYPERREFLEXIA [None]
  - MEMORY IMPAIRMENT [None]
  - METABOLIC ENCEPHALOPATHY [None]
  - MYOCLONUS [None]
  - NEUROTOXICITY [None]
  - OXYGEN SATURATION DECREASED [None]
  - SOMNOLENCE [None]
